FAERS Safety Report 5855634-4 (Version None)
Quarter: 2008Q3

REPORT INFORMATION
  Report Type: 
  Country: None (occurrence: None)
  Receive Date: 20080823
  Receipt Date: 20080814
  Transmission Date: 20090109
  Serious: Yes (Other)
  Sender: FDA-Public Use
  Company Number: DE-ELI_LILLY_AND_COMPANY-DE200808002726

PATIENT
  Sex: Male

DRUGS (7)
  1. BYETTA [Suspect]
     Indication: TYPE 2 DIABETES MELLITUS
     Dosage: 5 UG, 2/D
     Route: 058
     Dates: start: 20080401, end: 20080101
  2. BYETTA [Suspect]
     Dosage: 10 UG, 2/D
     Route: 058
     Dates: start: 20080101, end: 20080814
  3. DIGITOXIN INJ [Concomitant]
     Dosage: UNK, UNKNOWN
     Route: 065
  4. LASIX [Concomitant]
     Dosage: UNK, UNKNOWN
     Route: 065
  5. BLOPRESS [Concomitant]
     Dosage: UNK, UNKNOWN
     Route: 065
  6. ACE INHIBITOR NOS [Concomitant]
     Dosage: UNK, UNKNOWN
     Route: 065
  7. MARCUMAR [Concomitant]
     Dosage: UNK, UNKNOWN
     Route: 065

REACTIONS (1)
  - GLYCOSYLATED HAEMOGLOBIN INCREASED [None]
